FAERS Safety Report 21056704 (Version 4)
Quarter: 2023Q1

REPORT INFORMATION
  Report Type: Report from Study
  Country: DE (occurrence: None)
  Receive Date: 20220708
  Receipt Date: 20230303
  Transmission Date: 20230417
  Serious: Yes (Hospitalization)
  Sender: FDA-Public Use
  Company Number: DE-ROCHE-3129866

PATIENT
  Age: 40 Year
  Sex: Female
  Weight: 70 kg

DRUGS (11)
  1. ATEZOLIZUMAB [Suspect]
     Active Substance: ATEZOLIZUMAB
     Indication: Triple negative breast cancer
     Dosage: MOST RECENT DOSE ON 31/MAY/2022
     Route: 041
     Dates: start: 20220419
  2. PACLITAXEL [Suspect]
     Active Substance: PACLITAXEL
     Indication: Triple negative breast cancer
     Dosage: MOST RECENT DOSE ON 31/MAY/2022
     Route: 042
     Dates: start: 20220419
  3. CARBOPLATIN [Suspect]
     Active Substance: CARBOPLATIN
     Indication: Triple negative breast cancer
     Dosage: MOST RECENT DOSE ON 31/MAY/2022
     Route: 042
     Dates: start: 20220419
  4. FILGRASTIM [Concomitant]
     Active Substance: FILGRASTIM
     Dates: start: 20220619, end: 20220619
  5. PREDNISOLONE [Concomitant]
     Active Substance: PREDNISOLONE
     Dates: start: 20220607, end: 20220607
  6. DEXAMETHASONE [Concomitant]
     Active Substance: DEXAMETHASONE
     Dates: start: 20220419
  7. DEXAMETHASONE [Concomitant]
     Active Substance: DEXAMETHASONE
     Dates: start: 20220419
  8. DIMETHINDENE [Concomitant]
     Active Substance: DIMETHINDENE
     Dates: start: 20220419
  9. CIMETIDIN [Concomitant]
     Dates: start: 20220419
  10. GRANISETRON [Concomitant]
     Active Substance: GRANISETRON
     Dates: start: 20220419
  11. ONDANSETRON [Concomitant]
     Active Substance: ONDANSETRON
     Dates: start: 20220419

REACTIONS (1)
  - Febrile infection [Recovered/Resolved]

NARRATIVE: CASE EVENT DATE: 20220601
